FAERS Safety Report 9338880 (Version 3)
Quarter: 2013Q3

REPORT INFORMATION
  Report Type: Spontaneous
  Country: JP (occurrence: JP)
  Receive Date: 20130610
  Receipt Date: 20130719
  Transmission Date: 20140515
  Serious: Yes (Life-Threatening, Hospitalization)
  Sender: FDA-Public Use
  Company Number: JP-BAYER-2013-069631

PATIENT
  Age: 61 Year
  Sex: Male
  Weight: 58 kg

DRUGS (5)
  1. BAYASPIRIN [Suspect]
     Dosage: DAILY DOSE: 100MG
     Route: 048
     Dates: end: 20130521
  2. TANATRIL [Suspect]
     Indication: HYPERTENSION
     Dosage: DAILY DOSE: 5MG
     Route: 048
     Dates: end: 20120521
  3. PROTECADIN [Suspect]
     Indication: GASTRITIS
     Dosage: DAILY DOSE 10 MG
     Route: 048
     Dates: end: 20120521
  4. ALLELOCK [Suspect]
     Indication: HYPERSENSITIVITY
     Dosage: DAILY DOSE 5 MG
     Route: 048
     Dates: end: 20120521
  5. MYSLEE [Suspect]
     Indication: INSOMNIA
     Dosage: DAILY DOSE 5 MG
     Route: 048
     Dates: end: 20120521

REACTIONS (4)
  - Angioedema [Recovered/Resolved]
  - Local swelling [Recovered/Resolved]
  - Oropharyngeal swelling [Recovered/Resolved]
  - Dyspnoea [Recovered/Resolved]
